FAERS Safety Report 21499360 (Version 1)
Quarter: 2022Q4

REPORT INFORMATION
  Report Type: Spontaneous
  Country: GB (occurrence: None)
  Receive Date: 20221024
  Receipt Date: 20221024
  Transmission Date: 20230113
  Serious: Yes (Death, Life-Threatening, Other)
  Sender: FDA-Public Use
  Company Number: None

PATIENT
  Age: 79 Year
  Weight: 10 kg

DRUGS (4)
  1. SODIUM CHLORIDE [Suspect]
     Active Substance: SODIUM CHLORIDE
     Indication: Pain
     Dosage: OTHER FREQUENCY : 24 HRS;?
     Route: 058
     Dates: start: 20120728, end: 20120729
  2. MIDAZOLAM [Suspect]
     Active Substance: MIDAZOLAM
  3. ALFENTANIL [Suspect]
     Active Substance: ALFENTANIL
  4. DEVICE [Suspect]
     Active Substance: DEVICE

REACTIONS (3)
  - Delirium [None]
  - Swollen tongue [None]
  - Device issue [None]

NARRATIVE: CASE EVENT DATE: 20120728
